FAERS Safety Report 23960941 (Version 1)
Quarter: 2024Q2

REPORT INFORMATION
  Report Type: Spontaneous
  Country: CA (occurrence: CA)
  Receive Date: 20240611
  Receipt Date: 20240611
  Transmission Date: 20240716
  Serious: Yes (Hospitalization, Other)
  Sender: FDA-Public Use
  Company Number: CA-B.Braun Medical Inc.-2157969

PATIENT
  Age: 80 Year
  Sex: Female
  Weight: 74 kg

DRUGS (15)
  1. HEPARIN SODIUM IN SODIUM CHLORIDE [Suspect]
     Active Substance: HEPARIN SODIUM
     Indication: Thrombosis prophylaxis
     Route: 058
  2. DEXAMETHASONE [Suspect]
     Active Substance: DEXAMETHASONE
  3. VANCOMYCIN [Concomitant]
     Active Substance: VANCOMYCIN
  4. THIAMINE [Concomitant]
     Active Substance: THIAMINE
  5. SODIUM POLYSTYRENE SULFONATE [Concomitant]
     Active Substance: SODIUM POLYSTYRENE SULFONATE
  6. PIPERACILLIN SODIUM\TAZOBACTAM SODIUM [Concomitant]
     Active Substance: PIPERACILLIN SODIUM\TAZOBACTAM SODIUM
  7. PANTOPRAZOLE [Concomitant]
     Active Substance: PANTOPRAZOLE
  8. METOCLOPRAMIDE [Concomitant]
     Active Substance: METOCLOPRAMIDE
  9. LANSOPRAZOLE [Concomitant]
     Active Substance: LANSOPRAZOLE
  10. HUMULIN NOS [Concomitant]
     Active Substance: INSULIN HUMAN
  11. FUROSEMIDE [Concomitant]
     Active Substance: FUROSEMIDE
  12. CYANOCOBALAMIN [Concomitant]
     Active Substance: CYANOCOBALAMIN
  13. ATROPINE SULFATE BISOPROLOL CHOLECALCIFEROL [Concomitant]
  14. TRIHYDRATE [Concomitant]
  15. ALENDRONATE SODIUM [Concomitant]
     Active Substance: ALENDRONATE SODIUM

REACTIONS (2)
  - Duodenal ulcer perforation [Unknown]
  - Upper gastrointestinal haemorrhage [Unknown]
